FAERS Safety Report 4457983-3 (Version None)
Quarter: 2004Q3

REPORT INFORMATION
  Report Type: 
  Country: None (occurrence: None)
  Receive Date: 20040917
  Receipt Date: 20040528
  Transmission Date: 20050211
  Serious: Yes (Other)
  Sender: FDA-Public Use
  Company Number: US-JNJFOC-2004046703

PATIENT
  Sex: Female

DRUGS (2)
  1. TOPAMAX [Suspect]
     Indication: MIGRAINE
     Dosage: ORAL
     Route: 048
  2. PARNATE (TARNYLCYPROMINE SULFATE) [Concomitant]

REACTIONS (1)
  - THROMBOCYTOPENIA [None]
